FAERS Safety Report 18988214 (Version 1)
Quarter: 2021Q1

REPORT INFORMATION
  Report Type: Spontaneous
  Country: US (occurrence: US)
  Receive Date: 20210309
  Receipt Date: 20210309
  Transmission Date: 20210420
  Serious: Yes (Other)
  Sender: FDA-Public Use
  Company Number: US-GLAXOSMITHKLINE-US2021GSK047420

PATIENT
  Sex: Female

DRUGS (2)
  1. RANITIDINE HYDROCHLORIDE. [Suspect]
     Active Substance: RANITIDINE HYDROCHLORIDE
     Indication: COLITIS
     Dosage: UNK, PRESCRIPTION DAILY
     Route: 065
     Dates: start: 198201, end: 201201
  2. RANITIDINE. [Suspect]
     Active Substance: RANITIDINE
     Indication: COLITIS
     Dosage: UNK, PRESCRIPTION DAILY
     Route: 065
     Dates: start: 198201, end: 201201

REACTIONS (1)
  - Renal cancer [Unknown]
